FAERS Safety Report 6351871-3 (Version None)
Quarter: 2009Q3

REPORT INFORMATION
  Report Type: 
  Country: None (occurrence: None)
  Receive Date: 20090912
  Receipt Date: 20090622
  Transmission Date: 20100115
  Serious: No
  Sender: FDA-Public Use
  Company Number: US-ABBOTT-07P-163-0425205-00

PATIENT
  Sex: Female
  Weight: 65.376 kg

DRUGS (12)
  1. HUMIRA [Suspect]
     Indication: RHEUMATOID ARTHRITIS
     Route: 058
     Dates: start: 20040101, end: 20071101
  2. HUMIRA [Suspect]
     Dates: start: 20071115
  3. HUMIRA [Suspect]
     Indication: RHEUMATOID ARTHRITIS
     Route: 058
     Dates: start: 20071101
  4. IBANDRONATE SODIUM [Concomitant]
     Indication: OSTEOPENIA
     Route: 048
  5. LEVOTHYROXINE SODIUM [Concomitant]
     Indication: AUTOIMMUNE THYROIDITIS
     Route: 048
  6. RALOXIFENE HYDROCHLORIDE [Concomitant]
     Indication: OSTEOPENIA
     Route: 048
  7. AMBIEN CR [Concomitant]
     Indication: INSOMNIA
     Route: 048
  8. SERTRALINE HCL [Concomitant]
     Indication: STRESS
     Route: 048
  9. ESOMEPRAZOLE MAGNESIUM [Concomitant]
     Indication: GASTROOESOPHAGEAL REFLUX DISEASE
     Route: 048
  10. CALCIUM [Concomitant]
     Indication: DRUG USE FOR UNKNOWN INDICATION
     Route: 048
  11. FISH OIL [Concomitant]
     Indication: DRUG USE FOR UNKNOWN INDICATION
     Route: 048
  12. MULTI-VITAMIN [Concomitant]
     Indication: MEDICAL DIET
     Route: 048

REACTIONS (8)
  - ARTHRALGIA [None]
  - CYSTOCELE [None]
  - DRUG DELIVERY SYSTEM MALFUNCTION [None]
  - FATIGUE [None]
  - INCORRECT DOSE ADMINISTERED [None]
  - INJECTION SITE EXTRAVASATION [None]
  - RHEUMATOID ARTHRITIS [None]
  - URINARY TRACT INFECTION [None]
